FAERS Safety Report 13468031 (Version 1)
Quarter: 2017Q2

REPORT INFORMATION
  Report Type: Spontaneous
  Country: US (occurrence: US)
  Receive Date: 20170421
  Receipt Date: 20170421
  Transmission Date: 20170830
  Serious: Yes (Other)
  Sender: FDA-Public Use
  Company Number: US-MUNDIPHARMA DS AND PHARMACOVIGILANCE-USA-2016-0134533

PATIENT
  Sex: Female

DRUGS (1)
  1. OXYCONTIN [Suspect]
     Active Substance: OXYCODONE HYDROCHLORIDE
     Indication: PAIN
     Dosage: (7 X 80 MG) 560 MG, DAILY
     Route: 048
     Dates: end: 201603

REACTIONS (5)
  - Drug use disorder [Recovering/Resolving]
  - Drug withdrawal syndrome [Recovered/Resolved]
  - Drug use disorder [Unknown]
  - Nightmare [Recovered/Resolved]
  - Suicidal ideation [Unknown]
